FAERS Safety Report 16479087 (Version 1)
Quarter: 2019Q2

REPORT INFORMATION
  Report Type: Spontaneous
  Country: US (occurrence: US)
  Receive Date: 20190626
  Receipt Date: 20190626
  Transmission Date: 20190711
  Serious: Yes (Other)
  Sender: FDA-Public Use
  Company Number: US-SAOL THERAPEUTICS-2018SAO00938

PATIENT
  Sex: Female
  Weight: 76.64 kg

DRUGS (12)
  1. DULCOLAX NOS [Concomitant]
     Active Substance: BISACODYL OR DOCUSATE SODIUM
  2. VITAMIN D3 [Concomitant]
     Active Substance: CHOLECALCIFEROL
  3. COMPOUNDED BACLOFEN [Suspect]
     Active Substance: BACLOFEN
  4. VITAMIN B12 [Concomitant]
     Active Substance: CYANOCOBALAMIN
  5. NIACIN. [Concomitant]
     Active Substance: NIACIN
  6. IRON [Concomitant]
     Active Substance: IRON
  7. DITROPAN [Concomitant]
     Active Substance: OXYBUTYNIN CHLORIDE
  8. LIORESAL [Suspect]
     Active Substance: BACLOFEN
     Indication: MULTIPLE SCLEROSIS
     Dosage: 3.04 ?G, \DAY
     Route: 037
  9. LIORESAL [Suspect]
     Active Substance: BACLOFEN
     Indication: MUSCLE SPASTICITY
  10. LIORESAL [Suspect]
     Active Substance: BACLOFEN
     Indication: SPINAL CORD INJURY
  11. MAGNESIUM [Concomitant]
     Active Substance: MAGNESIUM
  12. FOSAMAX [Concomitant]
     Active Substance: ALENDRONATE SODIUM

REACTIONS (1)
  - Therapy non-responder [Unknown]
